FAERS Safety Report 5925974-9 (Version None)
Quarter: 2008Q4

REPORT INFORMATION
  Report Type: 
  Country: None (occurrence: None)
  Receive Date: 20081021
  Receipt Date: 20081020
  Transmission Date: 20090506
  Serious: No
  Sender: FDA-Public Use
  Company Number: US-B.I. PHARMACEUTICALS,INC./RIDGEFIELD-2008-BP-15993BP

PATIENT
  Sex: Female

DRUGS (7)
  1. MIRAPEX [Suspect]
     Indication: RESTLESS LEGS SYNDROME
     Dosage: .75MG
     Route: 048
     Dates: start: 20080601
  2. LIPITOR [Concomitant]
     Indication: LIPIDS INCREASED
  3. CALCIUM [Concomitant]
     Indication: OSTEOPOROSIS
  4. BONIVA [Concomitant]
     Indication: OSTEOPOROSIS
  5. VIT D [Concomitant]
     Indication: OSTEOPOROSIS
  6. PREVACID [Concomitant]
     Indication: GASTROOESOPHAGEAL REFLUX DISEASE
  7. URSO FORTE [Concomitant]
     Indication: LIVER DISORDER

REACTIONS (2)
  - DRUG INEFFECTIVE [None]
  - NAUSEA [None]
